FAERS Safety Report 24014061 (Version 1)
Quarter: 2024Q2

REPORT INFORMATION
  Report Type: Spontaneous
  Country: SE (occurrence: SE)
  Receive Date: 20240626
  Receipt Date: 20240626
  Transmission Date: 20240716
  Serious: Yes (Other)
  Sender: FDA-Public Use
  Company Number: None

PATIENT
  Age: 49 Year
  Sex: Female

DRUGS (3)
  1. FENTANYL [Suspect]
     Active Substance: FENTANYL\FENTANYL CITRATE
     Indication: Pain
     Dosage: FENTANYL RATIOPHARM
     Route: 061
     Dates: start: 20230801, end: 20240522
  2. Matriban [Concomitant]
     Indication: Product used for unknown indication
     Route: 061
     Dates: start: 20230801, end: 20240522
  3. FENTANYL [Concomitant]
     Active Substance: FENTANYL\FENTANYL CITRATE
     Indication: Product used for unknown indication
     Route: 061
     Dates: start: 20230801, end: 20240522

REACTIONS (3)
  - Pigmentation disorder [Unknown]
  - Scar [Unknown]
  - Dermatitis contact [Recovering/Resolving]

NARRATIVE: CASE EVENT DATE: 20240101
